FAERS Safety Report 20990385 (Version 1)
Quarter: 2022Q2

REPORT INFORMATION
  Report Type: Spontaneous
  Country: US (occurrence: US)
  Receive Date: 20220622
  Receipt Date: 20220622
  Transmission Date: 20220721
  Serious: No
  Sender: FDA-Public Use
  Company Number: US-BEH-2022146527

PATIENT
  Age: 9 Month

DRUGS (1)
  1. HIZENTRA [Suspect]
     Active Substance: HUMAN IMMUNOGLOBULIN G
     Route: 065

REACTIONS (4)
  - Infusion site extravasation [Unknown]
  - Incorrect drug administration rate [Unknown]
  - No adverse event [Unknown]
  - Off label use [Unknown]
